FAERS Safety Report 20981612 (Version 4)
Quarter: 2022Q4

REPORT INFORMATION
  Report Type: Report from Study
  Country: FR (occurrence: FR)
  Receive Date: 20220620
  Receipt Date: 20221003
  Transmission Date: 20230113
  Serious: Yes (Death, Hospitalization, Other)
  Sender: FDA-Public Use
  Company Number: FR-GILEAD-2022-0581860

PATIENT

DRUGS (19)
  1. EMTRICITABINE [Suspect]
     Active Substance: EMTRICITABINE
     Indication: HIV-2 infection
     Dosage: 200 MG, QD
     Route: 048
     Dates: start: 20160909, end: 20220904
  2. VIREAD [Concomitant]
     Active Substance: TENOFOVIR DISOPROXIL FUMARATE
     Indication: HIV test
     Dosage: 245 MG, QD
     Route: 048
     Dates: start: 20060627, end: 20170302
  3. VIREAD [Concomitant]
     Active Substance: TENOFOVIR DISOPROXIL FUMARATE
     Indication: Hepatitis B
  4. DARUNAVIR [Concomitant]
     Active Substance: DARUNAVIR
     Indication: HIV-2 infection
     Dosage: 1200 MG, QD
     Route: 065
     Dates: start: 20070809, end: 20111212
  5. RITONAVIR [Concomitant]
     Active Substance: RITONAVIR
     Indication: HIV-2 infection
     Dosage: UNK, QD
     Route: 065
     Dates: start: 20070806, end: 20120522
  6. RITONAVIR [Concomitant]
     Active Substance: RITONAVIR
     Dosage: UNK, QD
     Route: 065
     Dates: start: 20120702, end: 201209
  7. DOLUTEGRAVIR [Concomitant]
     Active Substance: DOLUTEGRAVIR
     Indication: HIV-2 infection
     Dosage: UNK, QD
     Route: 065
     Dates: start: 20140408, end: 20170302
  8. ISENTRESS [Concomitant]
     Active Substance: RALTEGRAVIR POTASSIUM
     Indication: HIV-2 infection
     Dosage: UNK, QD
     Route: 065
     Dates: start: 20120522, end: 20120702
  9. ISENTRESS [Concomitant]
     Active Substance: RALTEGRAVIR POTASSIUM
     Dosage: UNK, QD
     Route: 065
     Dates: start: 201209, end: 20140408
  10. LENACAPAVIR [Concomitant]
     Active Substance: LENACAPAVIR
     Indication: HIV-2 infection
     Dosage: 600 MG
     Route: 048
     Dates: start: 20220721, end: 20220722
  11. KIVEXA [Concomitant]
     Active Substance: ABACAVIR SULFATE\LAMIVUDINE
     Indication: HIV-2 infection
     Dosage: UNK, QD
     Route: 065
     Dates: start: 20120522, end: 20160909
  12. INVIRASE [Concomitant]
     Active Substance: SAQUINAVIR MESYLATE
     Indication: HIV-2 infection
     Dosage: UNK, QD
     Route: 065
     Dates: start: 20120702, end: 201209
  13. TROGARZO (IBALIZUMAB-UIYK) [Concomitant]
     Indication: HIV-2 infection
     Dosage: UNK
     Route: 042
     Dates: start: 20220721, end: 20220722
  14. ESOMEPRAZOLE [Concomitant]
     Active Substance: ESOMEPRAZOLE
     Indication: Product used for unknown indication
     Dosage: UNK
     Route: 065
  15. COTRIMOXAZOLE [Concomitant]
     Active Substance: SULFAMETHOXAZOLE\TRIMETHOPRIM
     Indication: Product used for unknown indication
     Dosage: UNK
     Route: 065
  16. ZOLPIDEM [Concomitant]
     Active Substance: ZOLPIDEM TARTRATE
     Indication: Product used for unknown indication
     Dosage: UNK
     Route: 065
  17. ATAZANAVIR [Concomitant]
     Active Substance: ATAZANAVIR
     Indication: Product used for unknown indication
     Dosage: UNK
     Route: 065
  18. BACTRIM [Concomitant]
     Active Substance: SULFAMETHOXAZOLE\TRIMETHOPRIM
     Indication: Product used for unknown indication
     Dosage: UNK
     Route: 048
     Dates: start: 20091214, end: 20220903
  19. VALACYCLOVIR HYDROCHLORIDE [Concomitant]
     Active Substance: VALACYCLOVIR HYDROCHLORIDE
     Indication: Herpes dermatitis
     Dosage: UNK
     Route: 065
     Dates: start: 20101026, end: 20220903

REACTIONS (9)
  - Hepatitis B [Fatal]
  - Hepatic cytolysis [Unknown]
  - Genotype drug resistance test positive [Not Recovered/Not Resolved]
  - Blood HIV RNA increased [Not Recovered/Not Resolved]
  - Hepatitis B DNA increased [Recovered/Resolved]
  - Dyspepsia [Unknown]
  - Pruritus [Unknown]
  - Drug ineffective [Not Recovered/Not Resolved]
  - Off label use [Unknown]
